FAERS Safety Report 14763429 (Version 1)
Quarter: 2018Q2

REPORT INFORMATION
  Report Type: Report from Study
  Country: US (occurrence: US)
  Receive Date: 20180416
  Receipt Date: 20180416
  Transmission Date: 20180711
  Serious: Yes (Hospitalization)
  Sender: FDA-Public Use
  Company Number: US-ASTRAZENECA-2018SE48379

PATIENT
  Age: 16671 Day
  Sex: Female
  Weight: 74.4 kg

DRUGS (2)
  1. MEDI4736 [Suspect]
     Active Substance: DURVALUMAB
     Indication: PAPILLOMA VIRAL INFECTION
     Dosage: 780 MG MILLIGRAMS, DAILY DOSE
     Route: 042
     Dates: start: 20180308, end: 20180308
  2. ADXS11-001 [Suspect]
     Active Substance: INVESTIGATIONAL PRODUCT
     Indication: PAPILLOMA VIRAL INFECTION
     Dosage: 1 X10^9 CFU, DAILY DOSE
     Route: 042
     Dates: start: 20180308, end: 20180308

REACTIONS (1)
  - Small intestinal obstruction [Not Recovered/Not Resolved]

NARRATIVE: CASE EVENT DATE: 20180406
